FAERS Safety Report 4529520-6 (Version None)
Quarter: 2004Q4

REPORT INFORMATION
  Report Type: 
  Country: None (occurrence: None)
  Receive Date: 20041216
  Receipt Date: 20041215
  Transmission Date: 20050328
  Serious: Yes (Death, Other)
  Sender: FDA-Public Use
  Company Number: 04-12-1736

PATIENT
  Age: 47 Year
  Sex: Male

DRUGS (1)
  1. CLOZAPINE [Suspect]
     Indication: SCHIZOPHRENIA
     Dosage: 300MG QD ORAL
     Route: 048
     Dates: start: 20030901, end: 20041101

REACTIONS (3)
  - CARDIO-RESPIRATORY ARREST [None]
  - NASOPHARYNGITIS [None]
  - RESPIRATORY DISORDER [None]
